FAERS Safety Report 5079048-2 (Version None)
Quarter: 2006Q3

REPORT INFORMATION
  Report Type: 
  Country: None (occurrence: None)
  Receive Date: 20060808
  Receipt Date: 20060727
  Transmission Date: 20061208
  Serious: Yes (Hospitalization, Other)
  Sender: FDA-Public Use
  Company Number: 2006094157

PATIENT
  Age: 64 Year
  Sex: Female
  Weight: 68.0396 kg

DRUGS (2)
  1. CELEBREX [Suspect]
     Indication: ARTHRITIS
     Dosage: 200 MG (200 MG, 1 IN 1 D)
     Dates: start: 20010130, end: 20041224
  2. BEXTRA [Concomitant]

REACTIONS (4)
  - CARDIAC DISORDER [None]
  - CEREBROVASCULAR ACCIDENT [None]
  - HAEMATOMA [None]
  - INTRACARDIAC THROMBUS [None]
